FAERS Safety Report 14264017 (Version 2)
Quarter: 2018Q1

REPORT INFORMATION
  Report Type: Spontaneous
  Country: US (occurrence: US)
  Receive Date: 20171208
  Receipt Date: 20180103
  Transmission Date: 20180508
  Serious: Yes (Hospitalization, Other)
  Sender: FDA-Public Use
  Company Number: US-ELI_LILLY_AND_COMPANY-US201711012552

PATIENT
  Age: 80 Year
  Sex: Female
  Weight: 84.35 kg

DRUGS (1)
  1. TRULICITY [Suspect]
     Active Substance: DULAGLUTIDE
     Indication: PRODUCT USED FOR UNKNOWN INDICATION
     Dosage: 1.5 MG, WEEKLY (1/W)
     Route: 058
     Dates: start: 20160912, end: 20171113

REACTIONS (3)
  - Pancreatitis [Recovered/Resolved]
  - Jaundice [Recovered/Resolved]
  - Weight decreased [Recovered/Resolved]
